FAERS Safety Report 8444832-1 (Version None)
Quarter: 2012Q2

REPORT INFORMATION
  Report Type: 
  Country: None (occurrence: None)
  Receive Date: 20120618
  Receipt Date: 20120608
  Transmission Date: 20120825
  Serious: Yes (Hospitalization, Other)
  Sender: FDA-Public Use
  Company Number: PHFR2012IE001119

PATIENT
  Sex: Male

DRUGS (1)
  1. CLOZARIL [Suspect]
     Indication: SCHIZOPHRENIA
     Dosage: 500 MG (100 MG MORNING 400 MG AT NIGHT)
     Route: 048
     Dates: start: 20110520

REACTIONS (7)
  - PSYCHOTIC DISORDER [None]
  - CIRCULATORY COLLAPSE [None]
  - RHABDOMYOLYSIS [None]
  - DECUBITUS ULCER [None]
  - RENAL FAILURE ACUTE [None]
  - HYPOPHAGIA [None]
  - DEHYDRATION [None]
